FAERS Safety Report 19743535 (Version 3)
Quarter: 2021Q4

REPORT INFORMATION
  Report Type: Spontaneous
  Country: IT (occurrence: IT)
  Receive Date: 20210824
  Receipt Date: 20211109
  Transmission Date: 20220303
  Serious: Yes (Death, Hospitalization, Other)
  Sender: FDA-Public Use
  Company Number: IT-SA-2021SA254640

PATIENT
  Age: 46 Year
  Sex: Male

DRUGS (11)
  1. BUSULFAN [Suspect]
     Active Substance: BUSULFAN
     Indication: Bone marrow conditioning regimen
     Dosage: UNK
     Route: 065
  2. BUSULFAN [Suspect]
     Active Substance: BUSULFAN
     Indication: Aplastic anaemia
  3. THIOTEPA [Suspect]
     Active Substance: THIOTEPA
     Indication: Bone marrow conditioning regimen
     Dosage: UNK
     Route: 065
  4. THIOTEPA [Suspect]
     Active Substance: THIOTEPA
     Indication: Aplastic anaemia
  5. DEFIBROTIDE [Suspect]
     Active Substance: DEFIBROTIDE (BOVINE)
     Indication: Venoocclusive liver disease
     Dosage: DAY 12 TO DAY 22
     Route: 065
  6. FLUDARABINE PHOSPHATE [Suspect]
     Active Substance: FLUDARABINE PHOSPHATE
     Indication: Bone marrow conditioning regimen
     Dosage: UNK
     Route: 065
  7. FLUDARABINE PHOSPHATE [Suspect]
     Active Substance: FLUDARABINE PHOSPHATE
     Indication: Aplastic anaemia
  8. CYCLOSPORINE [Suspect]
     Active Substance: CYCLOSPORINE
     Indication: Aplastic anaemia
     Dosage: UNK
     Route: 065
  9. CYCLOSPORINE [Suspect]
     Active Substance: CYCLOSPORINE
     Indication: Immunosuppressant drug therapy
  10. EQUINE THYMOCYTE IMMUNE GLOBULIN [Suspect]
     Active Substance: EQUINE THYMOCYTE IMMUNE GLOBULIN
     Indication: Aplastic anaemia
     Dosage: UNK
     Route: 065
  11. EQUINE THYMOCYTE IMMUNE GLOBULIN [Suspect]
     Active Substance: EQUINE THYMOCYTE IMMUNE GLOBULIN
     Indication: Immunosuppressant drug therapy

REACTIONS (19)
  - Jejunal ulcer [Fatal]
  - Duodenal ulcer [Fatal]
  - Mucosal erosion [Fatal]
  - Cardiac arrest [Fatal]
  - Condition aggravated [Fatal]
  - Apoptosis [Fatal]
  - Hyperplasia [Fatal]
  - Mucocutaneous ulceration [Fatal]
  - Melaena [Fatal]
  - Rectal haemorrhage [Fatal]
  - Intestinal haemorrhage [Fatal]
  - Enterocolitis viral [Fatal]
  - Duodenitis [Fatal]
  - Pyrexia [Fatal]
  - Epstein-Barr virus infection [Fatal]
  - Tachycardia [Fatal]
  - Hypotension [Fatal]
  - Sepsis [Fatal]
  - Venoocclusive disease [Recovering/Resolving]
